FAERS Safety Report 15262643 (Version 1)
Quarter: 2018Q3

REPORT INFORMATION
  Report Type: Spontaneous
  Country: US (occurrence: US)
  Receive Date: 20180720
  Receipt Date: 20180720
  Transmission Date: 20181010
  Serious: Yes (Hospitalization)
  Sender: FDA-Public Use
  Company Number: None

PATIENT
  Sex: Female

DRUGS (8)
  1. STELARA [Suspect]
     Active Substance: USTEKINUMAB
     Dates: start: 20180509
  2. METOPROLOL. [Concomitant]
     Active Substance: METOPROLOL
  3. KLONOPIN [Concomitant]
     Active Substance: CLONAZEPAM
  4. VICODIN [Concomitant]
     Active Substance: ACETAMINOPHEN\HYDROCODONE BITARTRATE
  5. METHOTREXATE. [Concomitant]
     Active Substance: METHOTREXATE
  6. ZANTAC [Concomitant]
     Active Substance: RANITIDINE HYDROCHLORIDE
  7. NASONEX [Concomitant]
     Active Substance: MOMETASONE FUROATE
  8. LEVOTHYROXINE. [Concomitant]
     Active Substance: LEVOTHYROXINE

REACTIONS (1)
  - Pulmonary embolism [None]
